FAERS Safety Report 8164512-X (Version None)
Quarter: 2012Q1

REPORT INFORMATION
  Report Type: 
  Country: None (occurrence: None)
  Receive Date: 20120224
  Receipt Date: 20120221
  Transmission Date: 20120608
  Serious: Yes (Hospitalization)
  Sender: FDA-Public Use
  Company Number: US-VERTEX PHARMACEUTICALS INC.-AE-2012-002575

PATIENT
  Sex: Female

DRUGS (8)
  1. BACLOFEN [Concomitant]
  2. HYDROCODONE BITARTRATE [Concomitant]
  3. RIBAVIRIN [Concomitant]
     Indication: HEPATITIS C
     Route: 048
     Dates: start: 20120120
  4. MAGNESIUM [Concomitant]
  5. PEGASYS [Concomitant]
     Indication: HEPATITIS C
     Route: 058
     Dates: start: 20120120
  6. SERTRALINE HYDROCHLORIDE [Concomitant]
  7. INCIVEK [Suspect]
     Indication: HEPATITIS C
     Route: 048
     Dates: start: 20120120
  8. LISINOPRIL [Concomitant]

REACTIONS (5)
  - MEMORY IMPAIRMENT [None]
  - HEMIPLEGIA [None]
  - DIZZINESS [None]
  - FATIGUE [None]
  - VISION BLURRED [None]
